FAERS Safety Report 10677717 (Version 2)
Quarter: 2024Q3

REPORT INFORMATION
  Report Type: Spontaneous
  Country: TR (occurrence: TR)
  Receive Date: 20141229
  Receipt Date: 20240913
  Transmission Date: 20241016
  Serious: Yes (Other)
  Sender: ROCHE
  Company Number: TR-ROCHE-1512965

PATIENT
  Age: 78 Year
  Sex: Male

DRUGS (1)
  1. BEVACIZUMAB [Suspect]
     Active Substance: BEVACIZUMAB
     Indication: Choroidal neovascularisation
     Dosage: 2.5MG/0.1ML
     Route: 050

REACTIONS (2)
  - Macular hole [Unknown]
  - Off label use [Unknown]
